FAERS Safety Report 24397121 (Version 1)
Quarter: 2024Q4

REPORT INFORMATION
  Report Type: Spontaneous
  Country: US (occurrence: US)
  Receive Date: 20241004
  Receipt Date: 20241004
  Transmission Date: 20250115
  Serious: No
  Sender: DR REDDYS
  Company Number: US-DRL-USA-SPO/USA/24/0014189

PATIENT
  Age: 18 Year
  Sex: Female

DRUGS (1)
  1. ACCUTANE [Suspect]
     Active Substance: ISOTRETINOIN
     Indication: Product used for unknown indication
     Route: 065
     Dates: start: 20240805

REACTIONS (5)
  - Skin mass [Unknown]
  - Acne [Unknown]
  - Papule [Unknown]
  - Scar [Unknown]
  - Cheilitis [Unknown]

NARRATIVE: CASE EVENT DATE: 20240906
